FAERS Safety Report 4321103-6 (Version None)
Quarter: 2004Q1

REPORT INFORMATION
  Report Type: 
  Country: None (occurrence: None)
  Receive Date: 20040322
  Receipt Date: 20030822
  Transmission Date: 20041129
  Serious: Yes (Other)
  Sender: FDA-Public Use
  Company Number: US-GLAXOSMITHKLINE-A0423164A

PATIENT
  Age: 10 Year
  Sex: Male

DRUGS (2)
  1. RETROVIR [Suspect]
     Route: 065
     Dates: start: 20020201
  2. EPIVIR [Suspect]
     Route: 048
     Dates: start: 20020201

REACTIONS (16)
  - ABDOMINAL TENDERNESS [None]
  - ANAEMIA [None]
  - BASOPHIL COUNT INCREASED [None]
  - DECREASED APPETITE [None]
  - DEMENTIA [None]
  - DIZZINESS [None]
  - HEADACHE [None]
  - INFLUENZA LIKE ILLNESS [None]
  - JAUNDICE [None]
  - LEUKOPENIA [None]
  - LISTLESS [None]
  - MEMORY IMPAIRMENT [None]
  - MUSCLE ATROPHY [None]
  - NAUSEA [None]
  - RED CELL DISTRIBUTION WIDTH INCREASED [None]
  - WEIGHT DECREASED [None]
